FAERS Safety Report 6999463-7 (Version None)
Quarter: 2010Q3

REPORT INFORMATION
  Report Type: 
  Country: None (occurrence: None)
  Receive Date: 20100920
  Receipt Date: 20100412
  Transmission Date: 20110219
  Serious: Yes (Disabling)
  Sender: FDA-Public Use
  Company Number: US-ASTRAZENECA-2007UW08449

PATIENT
  Sex: Female

DRUGS (10)
  1. SEROQUEL [Suspect]
     Dosage: 100 MG TO 400 MG
     Route: 048
     Dates: start: 20050104
  2. ZYPREXA [Concomitant]
     Dates: start: 20041222
  3. PHENTERMINE [Concomitant]
     Dates: start: 20050104
  4. HYDROCHLOROTHIAZIDE [Concomitant]
     Dates: start: 20050124
  5. GABAPENTIN [Concomitant]
     Dates: start: 20050124
  6. MIRTAZAPINE [Concomitant]
     Dates: start: 20050414
  7. PROPRANOLOL [Concomitant]
     Dosage: 20 MG TO 60 MG
     Dates: start: 20050601
  8. CLONAZEPAM [Concomitant]
     Dates: start: 20090323
  9. TRAZODONE HCL [Concomitant]
     Dates: start: 20090323
  10. SUMATRIPTAN [Concomitant]
     Dates: start: 20090323

REACTIONS (1)
  - DIABETES MELLITUS [None]
